FAERS Safety Report 9401295 (Version 3)
Quarter: 2013Q3

REPORT INFORMATION
  Report Type: Spontaneous
  Country: US (occurrence: US)
  Receive Date: 20130715
  Receipt Date: 20130829
  Transmission Date: 20140515
  Serious: No
  Sender: FDA-Public Use
  Company Number: US-VERTEX PHARMACEUTICALS INC-2013-007944

PATIENT
  Age: 43 Year
  Sex: Male
  Weight: 117 kg

DRUGS (10)
  1. INCIVEK [Suspect]
     Indication: HEPATITIS C
     Dosage: 750 MG, TID
     Route: 048
     Dates: start: 20130523, end: 20130711
  2. PEGASYS [Suspect]
     Indication: HEPATITIS C
     Dosage: 180 ?G, QW
     Route: 058
     Dates: start: 20130523, end: 20130711
  3. COPEGUS [Suspect]
     Indication: HEPATITIS C
     Dosage: 1400 MG, QD
     Route: 048
     Dates: start: 20130523, end: 20130711
  4. LISINOPRIL [Concomitant]
     Dosage: 10 MG, UNK
  5. METFORMIN HCL [Concomitant]
     Dosage: 500 MG, UNK
  6. PRILOSEC [Concomitant]
  7. ALLEGRA [Concomitant]
  8. MULTIVITAMIN [Concomitant]
  9. LEVITRA [Concomitant]
     Dosage: 20 MG, UNK
  10. COQ10 [Concomitant]

REACTIONS (7)
  - Joint swelling [Unknown]
  - Arthralgia [Unknown]
  - Oropharyngeal pain [Unknown]
  - Contusion [Unknown]
  - Fatigue [Unknown]
  - Diarrhoea [Unknown]
  - Drug ineffective [Not Recovered/Not Resolved]
